FAERS Safety Report 5878645-1 (Version None)
Quarter: 2008Q3

REPORT INFORMATION
  Report Type: 
  Country: None (occurrence: None)
  Receive Date: 20080912
  Receipt Date: 20080909
  Transmission Date: 20090109
  Serious: Yes (Hospitalization)
  Sender: FDA-Public Use
  Company Number: IT-TEVA-177173ISR

PATIENT
  Sex: Male

DRUGS (1)
  1. CEFTRIAXONE [Suspect]
     Indication: TONSILLITIS
     Route: 030
     Dates: start: 20080904, end: 20080904

REACTIONS (2)
  - BRONCHOSPASM [None]
  - SYNCOPE [None]
